FAERS Safety Report 12503547 (Version 1)
Quarter: 2016Q2

REPORT INFORMATION
  Report Type: Spontaneous
  Country: IT (occurrence: IT)
  Receive Date: 20160628
  Receipt Date: 20160628
  Transmission Date: 20160815
  Serious: Yes (Hospitalization, Other)
  Sender: FDA-Public Use
  Company Number: IT-ASTRAZENECA-2016SE68145

PATIENT
  Age: 26416 Day
  Sex: Male

DRUGS (4)
  1. RANEXA [Concomitant]
     Active Substance: RANOLAZINE
     Dosage: 375MG PROLONGED-RELEASE TABLETS
  2. XATRAL (ALFUZOSIN) [Concomitant]
  3. CONGESCOR (BISOPROLOL) [Concomitant]
  4. BRILIQUE [Suspect]
     Active Substance: TICAGRELOR
     Indication: THROMBOSIS PROPHYLAXIS
     Route: 048
     Dates: start: 20160101, end: 20160203

REACTIONS (2)
  - Acute kidney injury [Unknown]
  - Dyspnoea [Unknown]

NARRATIVE: CASE EVENT DATE: 20160203
